FAERS Safety Report 8838220 (Version 2)
Quarter: 2012Q4

REPORT INFORMATION
  Report Type: 
  Country: GB (occurrence: GB)
  Receive Date: 20121012
  Receipt Date: 20121019
  Transmission Date: 20130627
  Serious: Yes (Other)
  Sender: FDA-Public Use
  Company Number: GB-PFIZER INC-2012252977

PATIENT
  Age: 63 Year
  Sex: Female
  Weight: 64 kg

DRUGS (5)
  1. ATORVASTATIN [Suspect]
     Indication: BLOOD CHOLESTEROL INCREASED
     Dosage: 40 mg, UNK
     Route: 048
     Dates: start: 20120913, end: 20120921
  2. ADCAL-D3 [Concomitant]
     Dosage: 1 DF, 2x/day
     Route: 048
     Dates: start: 20080325
  3. NAPROXEN [Concomitant]
     Dosage: 500 mg, 2x/day
     Route: 048
     Dates: start: 20110121
  4. OMEPRAZOLE [Concomitant]
     Dosage: 20 mg, 1x/day
     Route: 048
     Dates: start: 20110121
  5. QUININE BISULFATE [Concomitant]
     Dosage: 200 mg, 1x/day at night
     Route: 048
     Dates: start: 20100917

REACTIONS (3)
  - Vasculitic rash [Recovering/Resolving]
  - Muscle spasms [Recovering/Resolving]
  - Flatulence [Recovering/Resolving]
